FAERS Safety Report 12920776 (Version 1)
Quarter: 2016Q4

REPORT INFORMATION
  Report Type: Spontaneous
  Country: US (occurrence: US)
  Receive Date: 20161108
  Receipt Date: 20161108
  Transmission Date: 20170207
  Serious: No
  Sender: FDA-Public Use
  Company Number: US-APOPHARMA USA, INC.-2016AP014373

PATIENT
  Age: 34 Year
  Sex: Female

DRUGS (3)
  1. LEUPROLIDE                         /00726901/ [Concomitant]
     Indication: OVARIAN FAILURE
     Dosage: 0.2 MG, QD
     Route: 058
  2. LEUPROLIDE                         /00726901/ [Concomitant]
     Dosage: 11.25 MG, SINGLE
     Route: 030
  3. ALKERAN [Suspect]
     Active Substance: MELPHALAN
     Indication: PLASMA CELL MYELOMA
     Dosage: 200 MG/M2, UNKNOWN
     Route: 065

REACTIONS (4)
  - Mood swings [Unknown]
  - Hot flush [Unknown]
  - Ovarian failure [Unknown]
  - Amenorrhoea [Recovering/Resolving]
